FAERS Safety Report 6611730-5 (Version None)
Quarter: 2010Q1

REPORT INFORMATION
  Report Type: 
  Country: None (occurrence: None)
  Receive Date: 20100303
  Receipt Date: 20100223
  Transmission Date: 20100710
  Serious: Yes (Other)
  Sender: FDA-Public Use
  Company Number: US-JNJFOC-20100210806

PATIENT
  Age: 58 Year
  Sex: Female
  Weight: 77.11 kg

DRUGS (2)
  1. RISPERDAL CONSTA [Suspect]
     Indication: ACCIDENTAL EXPOSURE
  2. OTHER THERAPEUTIC MEDICATION [Concomitant]

REACTIONS (4)
  - ACCIDENTAL EXPOSURE [None]
  - EXPOSURE TO CONTAMINATED DEVICE [None]
  - EYE IRRITATION [None]
  - PRODUCT QUALITY ISSUE [None]
